FAERS Safety Report 6250367-7 (Version None)
Quarter: 2009Q2

REPORT INFORMATION
  Report Type: 
  Country: None (occurrence: None)
  Receive Date: 20090630
  Receipt Date: 20090622
  Transmission Date: 20091009
  Serious: Yes (Hospitalization)
  Sender: FDA-Public Use
  Company Number: PHHY2009DE17026

PATIENT
  Sex: Male
  Weight: 100 kg

DRUGS (11)
  1. CARBAMAZEPINE [Suspect]
     Indication: NEURALGIA
     Dosage: 150 MG, TID
     Route: 048
     Dates: start: 20090324, end: 20090408
  2. CARBAMAZEPINE [Suspect]
     Dosage: 200 MG, TID
     Route: 048
     Dates: end: 20090408
  3. CARBAMAZEPINE [Suspect]
     Dosage: 300MG PREDOSE
     Route: 048
     Dates: start: 20090201
  4. CARBAMAZEPINE [Suspect]
     Dosage: 525MG
     Route: 048
  5. CARBAMAZEPINE [Suspect]
     Dosage: 600MG
     Route: 048
  6. CARBAMAZEPINE [Suspect]
     Dosage: 800MG
     Route: 048
     Dates: start: 20080301
  7. SIMVASTATIN [Concomitant]
     Indication: HYPERCHOLESTEROLAEMIA
     Dosage: 20 MG
     Route: 048
  8. ASPIRIN [Concomitant]
     Indication: SPINAL DISORDER
     Dosage: 100MG
     Route: 048
  9. CEFTRIAXONE [Concomitant]
     Indication: INFECTION
  10. METAMIZOL [Concomitant]
     Indication: NEURALGIA
  11. AMITRIPTYLINE [Concomitant]

REACTIONS (4)
  - DRUG RASH WITH EOSINOPHILIA AND SYSTEMIC SYMPTOMS [None]
  - PYREXIA [None]
  - RASH MACULO-PAPULAR [None]
  - TRANSAMINASES INCREASED [None]
